FAERS Safety Report 7207334-6 (Version None)
Quarter: 2011Q1

REPORT INFORMATION
  Report Type: 
  Country: None (occurrence: None)
  Receive Date: 20110103
  Receipt Date: 20101229
  Transmission Date: 20110831
  Serious: No
  Sender: FDA-Public Use
  Company Number: US-TEVA-260046USA

PATIENT
  Age: 65 Year
  Sex: Male

DRUGS (8)
  1. METOPROLOL [Concomitant]
  2. ATORVASTATIN CALCIUM [Concomitant]
  3. ACETYLSALICYLIC ACID SRT [Concomitant]
  4. LANSOPRAZOLE [Concomitant]
  5. AZILECT [Suspect]
     Indication: PARKINSON'S DISEASE
     Route: 048
  6. CLONAZEPAM [Concomitant]
  7. FINASTERIDE [Concomitant]
  8. MORNIFLUMATE [Concomitant]

REACTIONS (1)
  - BLOOD PRESSURE INCREASED [None]
